FAERS Safety Report 8297985-2 (Version None)
Quarter: 2012Q2

REPORT INFORMATION
  Report Type: 
  Country: None (occurrence: None)
  Receive Date: 20120419
  Receipt Date: 20120410
  Transmission Date: 20120825
  Serious: Yes (Hospitalization)
  Sender: FDA-Public Use
  Company Number: FR-ASTRAZENECA-2012SE16308

PATIENT
  Age: 13356 Day
  Sex: Female

DRUGS (4)
  1. KETOPROFEN [Suspect]
     Dosage: DAILY
     Route: 048
     Dates: start: 20120101, end: 20120201
  2. NEXIUM [Suspect]
     Route: 048
     Dates: start: 20120120, end: 20120125
  3. KETOPROFEN [Suspect]
     Indication: BREAST PAIN
     Route: 048
     Dates: start: 20120120, end: 20120125
  4. NEXIUM [Suspect]
     Dosage: DAILY
     Route: 048
     Dates: start: 20120101, end: 20120201

REACTIONS (1)
  - ACUTE GENERALISED EXANTHEMATOUS PUSTULOSIS [None]
